FAERS Safety Report 24553180 (Version 2)
Quarter: 2024Q4

REPORT INFORMATION
  Report Type: Spontaneous
  Country: NL (occurrence: NL)
  Receive Date: 20241028
  Receipt Date: 20241029
  Transmission Date: 20250115
  Serious: No
  Sender: ASTELLAS
  Company Number: None

PATIENT
  Age: 6 Year
  Sex: Male
  Weight: 24 kg

DRUGS (1)
  1. VESICARE [Suspect]
     Active Substance: SOLIFENACIN SUCCINATE
     Indication: Urinary incontinence
     Dosage: 2X DD 1 PIECE
     Route: 065
     Dates: start: 20240301, end: 20240622

REACTIONS (7)
  - Irritability [Recovered/Resolved]
  - Defiant behaviour [Recovered/Resolved]
  - Decreased interest [Recovered/Resolved]
  - Anger [Recovered/Resolved]
  - Restlessness [Recovered/Resolved]
  - Inappropriate schedule of product administration [Unknown]
  - Incorrect product formulation administered [Unknown]

NARRATIVE: CASE EVENT DATE: 20240301
